FAERS Safety Report 6377261-5 (Version None)
Quarter: 2009Q3

REPORT INFORMATION
  Report Type: 
  Country: None (occurrence: None)
  Receive Date: 20090924
  Receipt Date: 20090924
  Transmission Date: 20100115
  Serious: Yes (Life-Threatening)
  Sender: FDA-Public Use
  Company Number: None

PATIENT
  Sex: Male
  Weight: 11.225 kg

DRUGS (30)
  1. CARBOPLATIN [Suspect]
     Indication: CHEMOTHERAPY
     Dosage: 167 MG ONCE IV
     Route: 042
     Dates: start: 20090118
  2. CARBOPLATIN [Suspect]
     Indication: CHEMOTHERAPY
     Dosage: 167 MG. ONCE IV
     Route: 042
     Dates: start: 20090819
  3. ACYLOVIR [Concomitant]
  4. BIOTENE [Concomitant]
  5. CEFEPIME [Concomitant]
  6. LASIX [Concomitant]
  7. IMMUNE GLOBULIN INTRAVENOUS (HUMAN) [Concomitant]
  8. TYLENOL [Concomitant]
  9. BENADRYL [Concomitant]
  10. ZOFRAN [Concomitant]
  11. AZITHROMYCIN [Concomitant]
  12. CALCIUM CARBONATE [Concomitant]
  13. CEFTRIAXONE [Concomitant]
  14. CEFTAZIDIME [Concomitant]
  15. CHLORHEXIDINE TOPICAL [Concomitant]
  16. NEUPOGEN [Concomitant]
  17. FLUCONAZOLE [Concomitant]
  18. MORPHINE SULFATE [Concomitant]
  19. POTASSIUM CHLORIDE [Concomitant]
  20. RETAPLASE [Concomitant]
  21. SODIUM BICARB [Concomitant]
  22. BACTRIM [Concomitant]
  23. VANCOMYCIN [Concomitant]
  24. ALBUMIN (HUMAN) [Concomitant]
  25. CARBOPLATIN [Suspect]
     Indication: CHEMOTHERAPY
     Dosage: 167 MG. ONCE IV
     Route: 042
     Dates: start: 20090819
  26. CARBOPLATIN [Suspect]
     Indication: CHEMOTHERAPY
     Dosage: 167 M ONCE IV
     Route: 042
     Dates: start: 20090820
  27. ETOPOSIDE [Suspect]
     Indication: CHEMOTHERAPY
     Dosage: 83 MG. QD IV
     Route: 042
     Dates: start: 20090821, end: 20090823
  28. THIOTEPA [Suspect]
     Indication: CHEMOTHERAPY
     Dosage: 100 MG ONCE IV
     Route: 042
     Dates: start: 20090821
  29. THIOTEPA [Suspect]
     Indication: CHEMOTHERAPY
     Dosage: 100 MG. ONCE IV
     Route: 042
     Dates: start: 20090822
  30. THIOTEPA [Suspect]
     Indication: CHEMOTHERAPY
     Dosage: 100 MG ONCE IV
     Route: 042
     Dates: start: 20080823

REACTIONS (3)
  - PNEUMONIA [None]
  - PULMONARY ALVEOLAR HAEMORRHAGE [None]
  - RESPIRATORY DISTRESS [None]
